FAERS Safety Report 8891443 (Version 1)
Quarter: 2012Q4

REPORT INFORMATION
  Report Type: Spontaneous
  Country: US (occurrence: None)
  Receive Date: 20121031
  Receipt Date: 20121031
  Transmission Date: 20130627
  Serious: Yes (Hospitalization)
  Sender: FDA-Public Use
  Company Number: 2012AP003424

PATIENT
  Age: 37 Year
  Sex: Female

DRUGS (6)
  1. MELOXICAM TABLETS [Suspect]
     Indication: DRUG USE FOR UNKNOWN INDICATION
     Route: 048
     Dates: start: 201208
  2. SAVELLA [Suspect]
     Indication: FIBROMYALGIA
     Route: 048
     Dates: start: 2011, end: 2011
  3. SAVELLA [Suspect]
     Indication: FIBROMYALGIA
     Route: 048
     Dates: start: 2011, end: 201208
  4. BACLOFEN [Suspect]
     Indication: DRUG USE FOR UNKNOWN INDICATION
     Route: 048
     Dates: start: 201208
  5. CLONIDINE [Concomitant]
  6. METOPROLOL [Concomitant]

REACTIONS (4)
  - Suicide attempt [None]
  - Overdose [None]
  - Convulsion [None]
  - Depression [None]
